FAERS Safety Report 6603176-0 (Version None)
Quarter: 2010Q1

REPORT INFORMATION
  Report Type: 
  Country: None (occurrence: None)
  Receive Date: 20100218
  Receipt Date: 20100205
  Transmission Date: 20100710
  Serious: Yes (Hospitalization)
  Sender: FDA-Public Use
  Company Number: 310003M10FRA

PATIENT
  Age: 27 Year
  Sex: Female

DRUGS (8)
  1. GONAL-F [Suspect]
     Indication: IN VITRO FERTILISATION
     Dosage: 225 IU, 1 IN 1 DAYS, SUBCUTANEOUS 150 IU, 1 IN 1 DAYS, SUBCUTANEOUS 112.5 IU, 1 IN 1 DAYS, SUBCUTANE
     Route: 058
     Dates: start: 20091009, end: 20091011
  2. GONAL-F [Suspect]
     Indication: IN VITRO FERTILISATION
     Dosage: 225 IU, 1 IN 1 DAYS, SUBCUTANEOUS 150 IU, 1 IN 1 DAYS, SUBCUTANEOUS 112.5 IU, 1 IN 1 DAYS, SUBCUTANE
     Route: 058
     Dates: start: 20091012, end: 20091013
  3. GONAL-F [Suspect]
     Indication: IN VITRO FERTILISATION
     Dosage: 225 IU, 1 IN 1 DAYS, SUBCUTANEOUS 150 IU, 1 IN 1 DAYS, SUBCUTANEOUS 112.5 IU, 1 IN 1 DAYS, SUBCUTANE
     Route: 058
     Dates: start: 20091014, end: 20091015
  4. GONAL-F [Suspect]
     Indication: IN VITRO FERTILISATION
     Dosage: 225 IU, 1 IN 1 DAYS, SUBCUTANEOUS 150 IU, 1 IN 1 DAYS, SUBCUTANEOUS 112.5 IU, 1 IN 1 DAYS, SUBCUTANE
     Route: 058
     Dates: start: 20091016
  5. GONADORELIN INJ [Suspect]
     Indication: IN VITRO FERTILISATION
     Dosage: 0.1 MG, 1 IN 1 DAYS, SUBCUTANEOUS
     Route: 058
     Dates: start: 20090924, end: 20091001
  6. CHORIONIC GONADOTROPHINE ENDO (CHORIONIC GONADOTROPHIN) [Suspect]
     Indication: IN VITRO FERTILISATION
     Dosage: 10000 IU, INTRAMUSCULAR
     Route: 030
     Dates: start: 20091017
  7. ESTRADIOL [Suspect]
     Indication: IN VITRO FERTILISATION
     Dosage: 2 MG, 1 IN 1 DAYS, ORAL
     Route: 048
     Dates: start: 20091019, end: 20091103
  8. PROGESTERONE [Concomitant]

REACTIONS (11)
  - BACK PAIN [None]
  - BLOOD TRIGLYCERIDES INCREASED [None]
  - CEREBRAL VENOUS THROMBOSIS [None]
  - DRUG EXPOSURE DURING PREGNANCY [None]
  - HEADACHE [None]
  - INTRACRANIAL VENOUS SINUS THROMBOSIS [None]
  - LEUKOCYTOSIS [None]
  - LEUKOCYTURIA [None]
  - PREGNANCY [None]
  - PYELONEPHRITIS [None]
  - VOMITING [None]
